FAERS Safety Report 17854798 (Version 1)
Quarter: 2020Q2

REPORT INFORMATION
  Report Type: Spontaneous
  Country: US (occurrence: US)
  Receive Date: 20200603
  Receipt Date: 20200603
  Transmission Date: 20200714
  Serious: No
  Sender: FDA-Public Use
  Company Number: US-PFIZER INC-2020213958

PATIENT
  Age: 65 Year
  Sex: Male
  Weight: 105.22 kg

DRUGS (4)
  1. BRAFTOVI [Suspect]
     Active Substance: ENCORAFENIB
     Indication: RECTAL CANCER
     Dosage: 300 MG, DAILY, [4 CAPSULES DAILY]
     Dates: start: 20200427
  2. XARELTO [Concomitant]
     Active Substance: RIVAROXABAN
     Dosage: UNK
  3. MEKTOVI [Suspect]
     Active Substance: BINIMETINIB
     Indication: RECTAL CANCER
     Dosage: 45 MG, 2X/DAY(3 TABLETS TWICE A DAY)
     Dates: start: 20200427
  4. POTASSIUM [Concomitant]
     Active Substance: POTASSIUM
     Dosage: UNK

REACTIONS (1)
  - Asthenia [Not Recovered/Not Resolved]
